FAERS Safety Report 10399401 (Version 1)
Quarter: 2014Q3

REPORT INFORMATION
  Report Type: Spontaneous
  Country: GB (occurrence: None)
  Receive Date: 20140819
  Receipt Date: 20140819
  Transmission Date: 20150326
  Serious: Yes (Disabling)
  Sender: FDA-Public Use
  Company Number: AUR-APL-2014-08566

PATIENT
  Age: 70 Year
  Sex: Female

DRUGS (4)
  1. DONEPEZIL [Suspect]
     Active Substance: DONEPEZIL
     Indication: MEMORY IMPAIRMENT
     Route: 048
     Dates: start: 20140505, end: 20140722
  2. ORAMORPH (MORPHINE SULFATE PENTAHYDRATE) [Concomitant]
  3. CODEINE (CODEINE) [Concomitant]
     Active Substance: CODEINE
  4. SIMVASTATIN (SIMVASTATIN) [Concomitant]
     Active Substance: SIMVASTATIN

REACTIONS (5)
  - Theft [None]
  - Psychomotor hyperactivity [None]
  - Post-traumatic stress disorder [None]
  - Obsessive thoughts [None]
  - Injury [None]

NARRATIVE: CASE EVENT DATE: 20140522
